FAERS Safety Report 16300822 (Version 1)
Quarter: 2019Q2

REPORT INFORMATION
  Report Type: Report from Study
  Country: GB (occurrence: GB)
  Receive Date: 20190510
  Receipt Date: 20190510
  Transmission Date: 20190711
  Serious: Yes (Other)
  Sender: FDA-Public Use
  Company Number: GB-AMGEN-GBRSL2019042776

PATIENT
  Age: 49 Year
  Sex: Female

DRUGS (1)
  1. AMGEVITA [Suspect]
     Active Substance: ADALIMUMAB
     Indication: ANKYLOSING SPONDYLITIS
     Dosage: 40 MILLIGRAM, Q2WK
     Route: 065

REACTIONS (3)
  - Skin burning sensation [Unknown]
  - Rash generalised [Unknown]
  - Pharyngitis [Recovered/Resolved]

NARRATIVE: CASE EVENT DATE: 20190423
